FAERS Safety Report 8141513-9 (Version None)
Quarter: 2012Q1

REPORT INFORMATION
  Report Type: 
  Country: None (occurrence: None)
  Receive Date: 20120216
  Receipt Date: 20110119
  Transmission Date: 20120608
  Serious: Yes (Other)
  Sender: FDA-Public Use
  Company Number: ES-ROCHE-1033549

PATIENT

DRUGS (4)
  1. XELODA [Suspect]
  2. OXALIPLATIN [Suspect]
  3. XELODA [Suspect]
     Indication: RECTAL CANCER
  4. OXALIPLATIN [Suspect]
     Indication: RECTAL CANCER

REACTIONS (7)
  - NEUROTOXICITY [None]
  - PALMAR-PLANTAR ERYTHRODYSAESTHESIA SYNDROME [None]
  - DIARRHOEA [None]
  - TOXICITY TO VARIOUS AGENTS [None]
  - VOMITING [None]
  - THROMBOCYTOPENIA [None]
  - NEUTROPENIA [None]
